FAERS Safety Report 4712085-3 (Version None)
Quarter: 2005Q3

REPORT INFORMATION
  Report Type: 
  Country: None (occurrence: None)
  Receive Date: 20050712
  Receipt Date: 20050128
  Transmission Date: 20060218
  Serious: Yes (Death, Life-Threatening)
  Sender: FDA-Public Use
  Company Number: US-MERCK-0501USA04367

PATIENT
  Age: 59 Year
  Sex: Male
  Weight: 117 kg

DRUGS (13)
  1. VIOXX [Suspect]
     Indication: OSTEOARTHRITIS
     Route: 048
     Dates: start: 20000504
  2. VIOXX [Suspect]
     Route: 048
     Dates: start: 20000717
  3. VIOXX [Suspect]
     Route: 048
     Dates: start: 20001002
  4. VIOXX [Suspect]
     Route: 048
     Dates: start: 20001028
  5. VIOXX [Suspect]
     Route: 048
     Dates: start: 20010306, end: 20040101
  6. VIOXX [Suspect]
     Route: 048
     Dates: start: 20020905
  7. VIOXX [Suspect]
     Indication: BACK PAIN
     Route: 048
     Dates: start: 20000504
  8. VIOXX [Suspect]
     Route: 048
     Dates: start: 20000717
  9. VIOXX [Suspect]
     Route: 048
     Dates: start: 20001002
  10. VIOXX [Suspect]
     Route: 048
     Dates: start: 20001028
  11. VIOXX [Suspect]
     Route: 048
     Dates: start: 20010306, end: 20040101
  12. VIOXX [Suspect]
     Route: 048
     Dates: start: 20020905
  13. IBUPROFEN [Concomitant]
     Route: 065

REACTIONS (32)
  - ANXIETY [None]
  - BACK PAIN [None]
  - BENIGN PROSTATIC HYPERPLASIA [None]
  - BLOOD CHOLESTEROL INCREASED [None]
  - BLOOD TRIGLYCERIDES INCREASED [None]
  - BRONCHITIS [None]
  - CARDIO-RESPIRATORY ARREST [None]
  - CHEST DISCOMFORT [None]
  - CHEST PAIN [None]
  - CORONARY ARTERY DISEASE [None]
  - DYSPNOEA [None]
  - FALL [None]
  - FEELING ABNORMAL [None]
  - GASTROOESOPHAGEAL REFLUX DISEASE [None]
  - HYPERLIPIDAEMIA [None]
  - HYPOAESTHESIA [None]
  - INFUSION RELATED REACTION [None]
  - INTERVERTEBRAL DISC PROTRUSION [None]
  - JOINT EFFUSION [None]
  - MUSCLE SPASMS [None]
  - MYOCARDIAL INFARCTION [None]
  - NAIL INFECTION [None]
  - ONYCHOMYCOSIS [None]
  - OTITIS MEDIA CHRONIC [None]
  - PAIN [None]
  - PAIN IN EXTREMITY [None]
  - POLYARTHRITIS [None]
  - POSTNASAL DRIP [None]
  - SKIN LESION [None]
  - UPPER RESPIRATORY TRACT INFECTION [None]
  - VENTRICULAR FIBRILLATION [None]
  - VERTIGO POSITIONAL [None]
